FAERS Safety Report 10165896 (Version 2)
Quarter: 2014Q2

REPORT INFORMATION
  Report Type: Spontaneous
  Country: US (occurrence: US)
  Receive Date: 20140510
  Receipt Date: 20140510
  Transmission Date: 20141212
  Serious: No
  Sender: FDA-Public Use
  Company Number: US201209006520

PATIENT
  Age: 64 Year
  Sex: Male
  Weight: 91.61 kg

DRUGS (4)
  1. BYDUREON 2MG VIAL + SYRINGE [Suspect]
     Indication: TYPE 2 DIABETES MELLITUS
     Route: 058
     Dates: start: 20120712
  2. METFORMIN [Concomitant]
     Indication: TYPE 2 DIABETES MELLITUS
     Route: 048
  3. KOMBOGLYZE [Concomitant]
     Indication: TYPE 2 DIABETES MELLITUS
     Dates: end: 20120727
  4. ASPIRIN [Concomitant]

REACTIONS (2)
  - Injection site nodule [Not Recovered/Not Resolved]
  - Injection site pruritus [Recovered/Resolved]
